FAERS Safety Report 6712167-0 (Version None)
Quarter: 2010Q2

REPORT INFORMATION
  Report Type: 
  Country: None (occurrence: None)
  Receive Date: 20100505
  Receipt Date: 20100429
  Transmission Date: 20101027
  Serious: Yes (Other)
  Sender: FDA-Public Use
  Company Number: US-ROCHE-700732

PATIENT
  Sex: Female
  Weight: 71.7 kg

DRUGS (1)
  1. AVASTIN [Suspect]
     Route: 042
     Dates: start: 20090101

REACTIONS (1)
  - HEPATIC NEOPLASM [None]
